FAERS Safety Report 13272533 (Version 3)
Quarter: 2017Q1

REPORT INFORMATION
  Report Type: Spontaneous
  Country: US (occurrence: US)
  Receive Date: 20170227
  Receipt Date: 20170313
  Transmission Date: 20170428
  Serious: Yes (Hospitalization)
  Sender: FDA-Public Use
  Company Number: US-HORIZON-ACT-0037-2017

PATIENT
  Age: 8 Month
  Sex: Male
  Weight: 8.2 kg

DRUGS (4)
  1. ACTIMMUNE [Suspect]
     Active Substance: INTERFERON GAMMA-1B
     Indication: NEUTROPHIL FUNCTION DISORDER
     Dosage: 12.5 ?G TIW
     Dates: start: 20161228
  2. BACTRIM [Concomitant]
     Active Substance: SULFAMETHOXAZOLE\TRIMETHOPRIM
  3. ITRACONAZOLE. [Concomitant]
     Active Substance: ITRACONAZOLE
  4. CETRIZINE [Concomitant]
     Active Substance: CETIRIZINE HYDROCHLORIDE

REACTIONS (4)
  - Surgery [Recovering/Resolving]
  - Drug dose omission [Unknown]
  - Subcutaneous abscess [Recovering/Resolving]
  - Catheter placement [Unknown]

NARRATIVE: CASE EVENT DATE: 20170217
